FAERS Safety Report 8366647-5 (Version None)
Quarter: 2012Q2

REPORT INFORMATION
  Report Type: 
  Country: None (occurrence: None)
  Receive Date: 20120517
  Receipt Date: 20120509
  Transmission Date: 20120825
  Serious: Yes (Other)
  Sender: FDA-Public Use
  Company Number: US-NOVOPROD-351239

PATIENT
  Age: 43 Year
  Sex: Female
  Weight: 126.98 kg

DRUGS (5)
  1. IRON [Concomitant]
     Indication: ANAEMIA
     Dosage: UNKNOWN
     Route: 048
  2. CLOBETASOL PROPIONATE [Concomitant]
     Indication: LICHEN PLANUS
     Dosage: UNKNOWN
     Route: 061
  3. LEVEMIR [Suspect]
     Indication: TYPE 2 DIABETES MELLITUS
     Dosage: 15 U, QD
     Route: 058
     Dates: start: 20111101, end: 20120501
  4. VITAMIN C                          /00008001/ [Concomitant]
     Indication: SUPPLEMENTATION THERAPY
     Dosage: UNKNOWN
     Route: 048
  5. PROVERA [Concomitant]
     Indication: VAGINAL HAEMORRHAGE
     Dosage: 20 MG, QD
     Route: 048
     Dates: start: 20120101, end: 20120425

REACTIONS (4)
  - GAIT DISTURBANCE [None]
  - VAGINAL HAEMORRHAGE [None]
  - PAIN [None]
  - HAEMOGLOBIN DECREASED [None]
